FAERS Safety Report 24799372 (Version 1)
Quarter: 2025Q1

REPORT INFORMATION
  Report Type: Spontaneous
  Country: CN (occurrence: CN)
  Receive Date: 20250102
  Receipt Date: 20250102
  Transmission Date: 20250409
  Serious: Yes (Other)
  Sender: ACCORD
  Company Number: CN-MLMSERVICE-20241219-PI311946-00152-1

PATIENT
  Age: 49 Year
  Sex: Male

DRUGS (6)
  1. FLUOROURACIL [Suspect]
     Active Substance: FLUOROURACIL
     Indication: Adenocarcinoma of colon
     Dates: start: 202202, end: 202208
  2. OXALIPLATIN [Suspect]
     Active Substance: OXALIPLATIN
     Indication: Adenocarcinoma of colon
     Dates: start: 202202, end: 202208
  3. CETUXIMAB [Suspect]
     Active Substance: CETUXIMAB
     Indication: Adenocarcinoma of colon
     Dates: start: 202202, end: 202208
  4. OXALIPLATIN [Suspect]
     Active Substance: OXALIPLATIN
     Indication: Metastases to abdominal cavity
     Dates: start: 202202, end: 202208
  5. CETUXIMAB [Suspect]
     Active Substance: CETUXIMAB
     Indication: Metastases to abdominal cavity
     Dates: start: 202202, end: 202208
  6. FLUOROURACIL [Suspect]
     Active Substance: FLUOROURACIL
     Indication: Metastases to abdominal cavity
     Dates: start: 202202, end: 202208

REACTIONS (2)
  - Splenic abscess [Recovered/Resolved]
  - Bacteroides infection [Recovered/Resolved]

NARRATIVE: CASE EVENT DATE: 20221001
